FAERS Safety Report 4994967-0 (Version None)
Quarter: 2006Q2

REPORT INFORMATION
  Report Type: 
  Country: None (occurrence: None)
  Receive Date: 20060508
  Receipt Date: 20050218
  Transmission Date: 20061013
  Serious: Yes (Hospitalization)
  Sender: FDA-Public Use
  Company Number: PHHO2005US02992

PATIENT
  Age: 65 Year
  Sex: Male
  Weight: 85.3 kg

DRUGS (8)
  1. LOTREL [Suspect]
     Indication: HYPERTENSION
     Dosage: LEVEL 1
     Route: 048
     Dates: start: 20040701
  2. LOTREL [Suspect]
     Dosage: LEVEL 3
     Route: 048
  3. LOTREL [Suspect]
     Dosage: UNK, NO TREATMENT
  4. LOTREL [Suspect]
     Dosage: UNK, LEVEL 1
     Route: 048
  5. HYDRALAZINE HCL [Suspect]
     Dosage: 50 MG, UNK
  6. COREG [Suspect]
  7. CLONIDINE [Suspect]
  8. TERAZOSIN HCL [Suspect]
     Dosage: 5 MG, UNK

REACTIONS (5)
  - ASTHENIA [None]
  - BRADYCARDIA [None]
  - DEHYDRATION [None]
  - HYPOTENSION [None]
  - SYNCOPE [None]
